FAERS Safety Report 6873218-6 (Version None)
Quarter: 2010Q3

REPORT INFORMATION
  Report Type: 
  Country: None (occurrence: None)
  Receive Date: 20100723
  Receipt Date: 20081226
  Transmission Date: 20110219
  Serious: Yes (Hospitalization, Other)
  Sender: FDA-Public Use
  Company Number: US-PFIZER INC-2008160200

PATIENT
  Sex: Female
  Weight: 58.957 kg

DRUGS (4)
  1. CHANTIX [Suspect]
     Indication: SMOKING CESSATION THERAPY
     Dosage: UNK
     Dates: start: 20080101, end: 20080101
  2. LYRICA [Concomitant]
     Dosage: UNK
  3. PROZAC [Concomitant]
     Dosage: UNK
  4. ANALGESICS [Concomitant]
     Dosage: UNK

REACTIONS (3)
  - MEMORY IMPAIRMENT [None]
  - SUICIDAL IDEATION [None]
  - SUICIDE ATTEMPT [None]
